FAERS Safety Report 9163381 (Version 1)
Quarter: 2012Q4

REPORT INFORMATION
  Report Type: 
  Country: US (occurrence: US)
  Receive Date: 20121212
  Receipt Date: 20121212
  Transmission Date: 20130627
  Serious: Yes (Other)
  Sender: FDA-Public Use
  Company Number: US-RB-047500-12

PATIENT
  Age: 27 Year
  Sex: Male

DRUGS (2)
  1. MUCINEX D (GUAIFENESIN) [Suspect]
     Indication: PRODUCT USED FOR UNKNOWN INDICATION
     Dosage: Took 2 tablets on 04-DEC-2012 and 06-DEC-2012
     Route: 048
     Dates: start: 20121204
  2. MUCINEX D [Suspect]

REACTIONS (6)
  - Anxiety [Not Recovered/Not Resolved]
  - Pallor [Not Recovered/Not Resolved]
  - Rash [Not Recovered/Not Resolved]
  - Abdominal pain upper [Not Recovered/Not Resolved]
  - Insomnia [Not Recovered/Not Resolved]
  - Diarrhoea [Not Recovered/Not Resolved]
